FAERS Safety Report 9517316 (Version 2)
Quarter: 2013Q4

REPORT INFORMATION
  Report Type: Spontaneous
  Country: US (occurrence: US)
  Receive Date: 20130911
  Receipt Date: 20131005
  Transmission Date: 20140711
  Serious: No
  Sender: FDA-Public Use
  Company Number: US-ASTRAZENECA-2013SE63607

PATIENT
  Age: 56 Year
  Sex: Female
  Weight: 68 kg

DRUGS (1)
  1. SYMBICORT [Suspect]
     Indication: CHRONIC OBSTRUCTIVE PULMONARY DISEASE
     Dosage: 160 MCG/4.5 MCG BID
     Route: 055

REACTIONS (1)
  - Dyspnoea [Unknown]
